FAERS Safety Report 17728585 (Version 1)
Quarter: 2020Q2

REPORT INFORMATION
  Report Type: Report from Study
  Country: None (occurrence: US)
  Receive Date: 20200430
  Receipt Date: 20200430
  Transmission Date: 20200714
  Serious: Yes (Hospitalization, Other)
  Sender: FDA-Public Use
  Company Number: US-ABBVIE-19K-163-2891398-00

PATIENT
  Age: 34 Year
  Sex: Female

DRUGS (1)
  1. HUMIRA [Suspect]
     Active Substance: ADALIMUMAB
     Indication: CROHN^S DISEASE
     Route: 058
     Dates: start: 20190709

REACTIONS (25)
  - Insomnia [Not Recovered/Not Resolved]
  - Gastrointestinal pain [Not Recovered/Not Resolved]
  - Fatigue [Recovering/Resolving]
  - Anger [Unknown]
  - Rectal haemorrhage [Recovering/Resolving]
  - Gastrointestinal infection [Unknown]
  - Urinary tract infection [Unknown]
  - Abnormal faeces [Not Recovered/Not Resolved]
  - Paraesthesia [Recovered/Resolved]
  - Decreased appetite [Not Recovered/Not Resolved]
  - Disability [Unknown]
  - Depressed mood [Not Recovered/Not Resolved]
  - Emotional distress [Unknown]
  - Bipolar disorder [Unknown]
  - Musculoskeletal disorder [Not Recovered/Not Resolved]
  - Fear [Not Recovered/Not Resolved]
  - Diarrhoea [Recovering/Resolving]
  - Pain in extremity [Unknown]
  - Headache [Recovering/Resolving]
  - Bacterial infection [Unknown]
  - Weight decreased [Unknown]
  - Colitis [Recovering/Resolving]
  - Chills [Unknown]
  - Hypoaesthesia [Recovered/Resolved]
  - Back pain [Unknown]

NARRATIVE: CASE EVENT DATE: 2019
